FAERS Safety Report 22034671 (Version 1)
Quarter: 2023Q1

REPORT INFORMATION
  Report Type: Spontaneous
  Country: US (occurrence: US)
  Receive Date: 20230224
  Receipt Date: 20230224
  Transmission Date: 20230417
  Serious: No
  Sender: FDA-Public Use
  Company Number: US-PFIZER INC-202300080137

PATIENT
  Age: 73 Year
  Sex: Female

DRUGS (2)
  1. INLYTA [Suspect]
     Active Substance: AXITINIB
     Dosage: 5 MG, 1 TABLET EVERY 12 HOURS ON WEEKS 1, 2, 3, AND 4
     Dates: start: 20230213, end: 202302
  2. INLYTA [Suspect]
     Active Substance: AXITINIB
     Dosage: 5 MG, 1 TABLET EVERY 12 HOURS ON WEEKS 1, 2, 3, AND 4
     Dates: start: 202302

REACTIONS (2)
  - Diarrhoea [Recovered/Resolved]
  - Fatigue [Not Recovered/Not Resolved]

NARRATIVE: CASE EVENT DATE: 20230201
